FAERS Safety Report 21378463 (Version 1)
Quarter: 2022Q3

REPORT INFORMATION
  Report Type: Spontaneous
  Country: IT (occurrence: IT)
  Receive Date: 20220927
  Receipt Date: 20220927
  Transmission Date: 20221026
  Serious: Yes (Death, Other)
  Sender: FDA-Public Use
  Company Number: IT-RECORDATI-2022004185

PATIENT

DRUGS (5)
  1. ISTURISA [Suspect]
     Active Substance: OSILODROSTAT PHOSPHATE
     Indication: Cushing^s syndrome
     Dosage: 2 MILLIGRAM, BID
     Route: 048
     Dates: start: 20220826
  2. EVEROLIMUS [Concomitant]
     Active Substance: EVEROLIMUS
     Indication: Carcinoid tumour pulmonary
     Dosage: 10 MILLIGRAM, QD
     Route: 048
     Dates: start: 20220601
  3. LANREOTIDE [Concomitant]
     Active Substance: LANREOTIDE
     Indication: Carcinoid tumour pulmonary
     Dosage: 120 MILLIGRAM, QM
     Route: 048
     Dates: start: 20220101
  4. CANRENOATE POTASSIUM [Concomitant]
     Active Substance: CANRENOATE POTASSIUM
     Indication: Hypokalaemia
     Dosage: 100 MILLIGRAM, QD
     Route: 048
     Dates: start: 20220819
  5. INSULIN GLARGINE [Concomitant]
     Active Substance: INSULIN GLARGINE
     Indication: Diabetes mellitus
     Dosage: 120 UNK, QD
     Route: 058
     Dates: start: 20220823

REACTIONS (6)
  - Respiratory failure [Fatal]
  - Ischaemic stroke [Fatal]
  - Cerebrovascular accident [Unknown]
  - Hyperglycaemia [Unknown]
  - Loss of consciousness [Recovered/Resolved]
  - Hypokalaemia [Unknown]

NARRATIVE: CASE EVENT DATE: 20220101
